FAERS Safety Report 16925551 (Version 2)
Quarter: 2019Q4

REPORT INFORMATION
  Report Type: Spontaneous
  Country: US (occurrence: US)
  Receive Date: 20191016
  Receipt Date: 20191030
  Transmission Date: 20200122
  Serious: No
  Sender: FDA-Public Use
  Company Number: US-AMGEN-USASP2019170544

PATIENT
  Age: 66 Year
  Sex: Female
  Weight: 56.1 kg

DRUGS (1)
  1. NEULASTA [Suspect]
     Active Substance: PEGFILGRASTIM
     Indication: PROPHYLAXIS
     Dosage: 6 MILLIGRAM
     Route: 065
     Dates: start: 20190816

REACTIONS (2)
  - Device use error [Unknown]
  - Fall [Unknown]

NARRATIVE: CASE EVENT DATE: 20190819
